FAERS Safety Report 17596498 (Version 2)
Quarter: 2020Q2

REPORT INFORMATION
  Report Type: Spontaneous
  Country: AR (occurrence: AR)
  Receive Date: 20200330
  Receipt Date: 20200514
  Transmission Date: 20200713
  Serious: Yes (Other)
  Sender: FDA-Public Use
  Company Number: AR-AMGEN-ARGSP2020050708

PATIENT
  Age: 70 Year
  Sex: Female

DRUGS (1)
  1. ENBREL [Suspect]
     Active Substance: ETANERCEPT
     Indication: RHEUMATOID ARTHRITIS
     Dosage: 50 MG, WEEKLY
     Route: 065
     Dates: start: 20191220

REACTIONS (7)
  - Dyspnoea [Recovering/Resolving]
  - Tachycardia [Recovered/Resolved]
  - Malaise [Recovered/Resolved]
  - Asthmatic crisis [Recovering/Resolving]
  - Hypertension [Recovering/Resolving]
  - Sleep disorder due to general medical condition, insomnia type [Recovering/Resolving]
  - Overweight [Recovering/Resolving]

NARRATIVE: CASE EVENT DATE: 201912
